FAERS Safety Report 5669177-4 (Version None)
Quarter: 2008Q1

REPORT INFORMATION
  Report Type: 
  Country: None (occurrence: None)
  Receive Date: 20080317
  Receipt Date: 20080317
  Transmission Date: 20080703
  Serious: Yes (Other)
  Sender: FDA-Public Use
  Company Number: None

PATIENT
  Age: 69 Year
  Sex: Female
  Weight: 79.3795 kg

DRUGS (1)
  1. HEPARIN [Suspect]
     Indication: CYSTITIS
     Dosage: 1 CC IN WITH OTHER MEDS; WEEKLY, MONTHLY; OTHER
     Route: 050
     Dates: start: 20080101, end: 20080301

REACTIONS (4)
  - BLADDER DISORDER [None]
  - INSTILLATION SITE IRRITATION [None]
  - PHARMACEUTICAL PRODUCT COMPLAINT [None]
  - URETHRAL PAIN [None]
